FAERS Safety Report 9033456 (Version 1)
Quarter: 2013Q1

REPORT INFORMATION
  Report Type: Spontaneous
  Country: IE (occurrence: IE)
  Receive Date: 20130128
  Receipt Date: 20130128
  Transmission Date: 20140127
  Serious: Yes (Death)
  Sender: FDA-Public Use
  Company Number: IE-AMGEN-IRLSP2012005331

PATIENT
  Sex: Male

DRUGS (1)
  1. ARANESP [Suspect]
     Indication: LUNG NEOPLASM MALIGNANT
     Dosage: 500 MUG, Q3WK
     Dates: start: 20111123

REACTIONS (1)
  - Death [Fatal]
